FAERS Safety Report 20501275 (Version 1)
Quarter: 2022Q1

REPORT INFORMATION
  Report Type: Report from Study
  Country: US (occurrence: US)
  Receive Date: 20220222
  Receipt Date: 20220222
  Transmission Date: 20220423
  Serious: Yes (Hospitalization)
  Sender: FDA-Public Use
  Company Number: US-JNJFOC-20220150506

PATIENT
  Age: 50 Year
  Sex: Female

DRUGS (1)
  1. MACITENTAN [Suspect]
     Active Substance: MACITENTAN
     Indication: Product used for unknown indication
     Route: 048
     Dates: start: 20220202, end: 20220204

REACTIONS (6)
  - Hypotension [Recovered/Resolved]
  - Malaise [Recovered/Resolved]
  - Palpitations [Recovered/Resolved]
  - Heart rate decreased [Recovered/Resolved]
  - COVID-19 [Unknown]
  - Confusional state [Unknown]

NARRATIVE: CASE EVENT DATE: 20220203
